FAERS Safety Report 8567303 (Version 2)
Quarter: 2014Q4

REPORT INFORMATION
  Report Type: Spontaneous
  Country: JP (occurrence: JP)
  Receive Date: 20120517
  Receipt Date: 20141125
  Transmission Date: 20150529
  Serious: Yes (Other)
  Sender: FDA-Public Use
  Company Number: JP-GLAXOSMITHKLINE-B0782756A

PATIENT
  Age: 42 Year
  Sex: Male

DRUGS (3)
  1. ADEFOVIR DIPIVOXIL. [Suspect]
     Active Substance: ADEFOVIR DIPIVOXIL
     Route: 048
     Dates: start: 201108
  2. ADEFOVIR DIPIVOXIL. [Suspect]
     Active Substance: ADEFOVIR DIPIVOXIL
     Indication: CHRONIC HEPATITIS B
     Route: 048
     Dates: start: 20050119, end: 201108
  3. LAMIVUDINE. [Suspect]
     Active Substance: LAMIVUDINE
     Indication: CHRONIC HEPATITIS B
     Route: 048
     Dates: start: 20001222

REACTIONS (22)
  - Nephrolithiasis [Unknown]
  - Renal tubular disorder [Unknown]
  - Arthralgia [Unknown]
  - Gait disturbance [Unknown]
  - Hypophosphataemia [Unknown]
  - Renal disorder [Not Recovered/Not Resolved]
  - Weight decreased [Unknown]
  - Osteomalacia [Not Recovered/Not Resolved]
  - Renal tubular acidosis [Unknown]
  - Decreased activity [Unknown]
  - Blood alkaline phosphatase increased [Unknown]
  - Bone scan abnormal [Unknown]
  - Fracture [Unknown]
  - Body height decreased [Unknown]
  - Ankylosing spondylitis [Unknown]
  - Arthralgia [Unknown]
  - Musculoskeletal chest pain [Unknown]
  - Thyroid function test abnormal [Unknown]
  - Fanconi syndrome [Unknown]
  - Blood creatinine increased [Unknown]
  - Bone pain [Unknown]
  - Pain [Unknown]

NARRATIVE: CASE EVENT DATE: 200705
